FAERS Safety Report 8379496-9 (Version None)
Quarter: 2012Q2

REPORT INFORMATION
  Report Type: 
  Country: None (occurrence: None)
  Receive Date: 20120523
  Receipt Date: 20120514
  Transmission Date: 20120825
  Serious: No
  Sender: FDA-Public Use
  Company Number: US-ASTRAZENECA-2011SE26981

PATIENT
  Age: 46 Year
  Sex: Female

DRUGS (3)
  1. CRESTOR [Suspect]
     Route: 048
  2. NEXIUM [Concomitant]
  3. PRILOSEC [Suspect]
     Route: 048

REACTIONS (6)
  - HYPERSENSITIVITY [None]
  - MUSCULAR WEAKNESS [None]
  - ULCER [None]
  - HERNIA [None]
  - MYALGIA [None]
  - BURN OESOPHAGEAL [None]
